FAERS Safety Report 6634392-X (Version None)
Quarter: 2010Q1

REPORT INFORMATION
  Report Type: 
  Country: None (occurrence: None)
  Receive Date: 20100315
  Receipt Date: 20100304
  Transmission Date: 20100710
  Serious: Yes (Hospitalization)
  Sender: FDA-Public Use
  Company Number: JP-ROCHE-649079

PATIENT
  Sex: Male
  Weight: 66 kg

DRUGS (20)
  1. TOCILIZUMAB [Suspect]
     Indication: CASTLEMAN'S DISEASE
     Route: 041
     Dates: start: 20071127, end: 20081015
  2. TOCILIZUMAB [Suspect]
     Route: 041
     Dates: start: 20081105, end: 20090210
  3. TOCILIZUMAB [Suspect]
     Route: 041
     Dates: start: 20090225, end: 20090903
  4. TOCILIZUMAB [Suspect]
     Route: 041
     Dates: start: 20091028, end: 20091118
  5. TOCILIZUMAB [Suspect]
     Route: 041
     Dates: start: 20091209
  6. SERMION [Concomitant]
     Dosage: DOSE FORM:PERORAL AGENT
     Route: 048
  7. CARNACULIN [Concomitant]
     Route: 048
  8. MEILAX [Concomitant]
     Dosage: DOSE FORM: PERORAL AGENT
     Route: 048
  9. DEPAKENE [Concomitant]
     Dosage: FORM: PERORAL AGENT.
     Route: 048
  10. MALFA SUSPENSION [Concomitant]
     Dosage: FORM:PERORAL LIQUID PREPERATION.  DOSAGE ADJUSTED
     Route: 048
  11. LAC-B [Concomitant]
     Route: 048
     Dates: start: 20071127
  12. SELBEX [Concomitant]
     Dosage: FORM: PER ORAL AGENT
     Route: 048
     Dates: start: 20080319, end: 20090701
  13. TAKEPRON [Concomitant]
     Dosage: FORM: ORAL FORMULATION (NOT OTHERWISE SPECIFIED)
     Route: 048
     Dates: start: 20090526, end: 20090928
  14. MUCOSOLVAN [Concomitant]
     Dosage: FORM: PER ORAL AGENT
     Route: 048
     Dates: start: 20090101
  15. MUCOSTA [Concomitant]
     Dosage: FORM: PERORAL AGENT
     Route: 048
     Dates: start: 20090526, end: 20090701
  16. KALLIKREIN [Concomitant]
     Route: 048
     Dates: start: 20090101
  17. DEPROMEL [Concomitant]
     Route: 048
     Dates: start: 20090101
  18. GASMOTIN [Concomitant]
     Dosage: FORM: PER ORAL AGENT
     Route: 048
     Dates: start: 20090709
  19. GASTER [Concomitant]
     Dosage: DOSE FORM: PERORAL AGENT
     Route: 048
     Dates: start: 20091008
  20. LOXONIN [Concomitant]
     Dosage: DOSE FORM: PER ORAL AGENT
     Route: 048
     Dates: end: 20090630

REACTIONS (6)
  - BRONCHITIS [None]
  - DIARRHOEA [None]
  - ECZEMA [None]
  - GASTRIC ULCER [None]
  - HYPOAESTHESIA [None]
  - URINARY TRACT INFECTION [None]
